FAERS Safety Report 5705037-8 (Version None)
Quarter: 2008Q2

REPORT INFORMATION
  Report Type: 
  Country: None (occurrence: None)
  Receive Date: 20080414
  Receipt Date: 20080404
  Transmission Date: 20081010
  Serious: Yes (Hospitalization)
  Sender: FDA-Public Use
  Company Number: DE-PFIZER INC-2008030496

PATIENT
  Age: 75 Year
  Sex: Male

DRUGS (8)
  1. NORVASC [Interacting]
     Indication: HYPERTENSION
     Dosage: DAILY DOSE:20MG
     Route: 048
  2. TRIMIPRAMINE MALEATE [Interacting]
     Dosage: DAILY DOSE:25MG
     Route: 048
     Dates: start: 20070426, end: 20070428
  3. LORZAAR [Interacting]
     Indication: HYPERTENSION
     Dosage: DAILY DOSE:50MG
     Route: 048
  4. PAROXETINE HCL [Interacting]
     Dosage: DAILY DOSE:15MG
     Route: 048
     Dates: start: 20070426, end: 20070429
  5. HYDROCHLOROTHIAZIDE [Suspect]
     Indication: DIURETIC THERAPY
     Dosage: DAILY DOSE:12.5MG
     Route: 048
  6. TOREM [Suspect]
     Indication: DIURETIC THERAPY
     Dosage: DAILY DOSE:10MG
     Route: 048
  7. METFORMIN HCL [Concomitant]
  8. SIMVASTATIN [Concomitant]

REACTIONS (3)
  - DRUG INTERACTION [None]
  - HYPONATRAEMIA [None]
  - LEUKOCYTOSIS [None]
